FAERS Safety Report 11315836 (Version 1)
Quarter: 2015Q3

REPORT INFORMATION
  Report Type: Spontaneous
  Country: US (occurrence: None)
  Receive Date: 20150724
  Receipt Date: 20150724
  Transmission Date: 20151125
  Serious: No
  Sender: FDA-Public Use
  Company Number: None

PATIENT
  Age: 62 Year
  Sex: Male

DRUGS (1)
  1. GADOBENATE DIMEGLUMINE [Suspect]
     Active Substance: GADOBENATE DIMEGLUMINE
     Indication: NUCLEAR MAGNETIC RESONANCE IMAGING
     Route: 042
     Dates: start: 20150320, end: 20150320

REACTIONS (11)
  - No reaction on previous exposure to drug [None]
  - Dry throat [None]
  - Flushing [None]
  - Seizure [None]
  - Burning sensation [None]
  - Chest discomfort [None]
  - Hemiparesis [None]
  - Hypersensitivity [None]
  - Anxiety [None]
  - Dyspnoea [None]
  - Infusion related reaction [None]

NARRATIVE: CASE EVENT DATE: 20150320
